FAERS Safety Report 10138387 (Version 1)
Quarter: 2014Q2

REPORT INFORMATION
  Report Type: Spontaneous
  Country: CA (occurrence: CA)
  Receive Date: 20140429
  Receipt Date: 20140429
  Transmission Date: 20141212
  Serious: Yes (Other)
  Sender: FDA-Public Use
  Company Number: CA-TEVA-478605USA

PATIENT
  Sex: 0

DRUGS (2)
  1. TREANDA [Suspect]
     Indication: MANTLE CELL LYMPHOMA
  2. RITUXIMAB [Suspect]
     Indication: MANTLE CELL LYMPHOMA

REACTIONS (2)
  - Aspiration bone marrow abnormal [Unknown]
  - Off label use [Unknown]
